FAERS Safety Report 6457718-9 (Version None)
Quarter: 2009Q4

REPORT INFORMATION
  Report Type: 
  Country: None (occurrence: None)
  Receive Date: 20091125
  Receipt Date: 20091116
  Transmission Date: 20100525
  Serious: Yes (Other)
  Sender: FDA-Public Use
  Company Number: US-PFIZER INC-2009300236

PATIENT
  Sex: Female
  Weight: 58.05 kg

DRUGS (2)
  1. CHANTIX [Suspect]
     Indication: SMOKING CESSATION THERAPY
     Dosage: 0.5 MG, 1X/DAY
     Route: 048
     Dates: start: 20091015, end: 20091001
  2. CHANTIX [Suspect]
     Dosage: 1 MG, 2X/DAY
     Route: 048
     Dates: start: 20091001, end: 20091030

REACTIONS (7)
  - ABNORMAL DREAMS [None]
  - BURNING SENSATION [None]
  - CHILLS [None]
  - NAUSEA [None]
  - PAIN [None]
  - PYREXIA [None]
  - URTICARIA [None]
